FAERS Safety Report 5271035-4 (Version None)
Quarter: 2007Q1

REPORT INFORMATION
  Report Type: 
  Country: None (occurrence: None)
  Receive Date: 20070321
  Receipt Date: 20070307
  Transmission Date: 20070707
  Serious: Yes (Death, Hospitalization)
  Sender: FDA-Public Use
  Company Number: CA-AMGEN-US175821

PATIENT
  Sex: Female
  Weight: 109 kg

DRUGS (4)
  1. ENBREL [Suspect]
     Indication: RHEUMATOID ARTHRITIS
     Route: 058
     Dates: start: 20050430, end: 20060325
  2. ARTHROTEC [Concomitant]
     Dates: start: 20050904
  3. LITHIUM CARBONATE [Concomitant]
     Dates: start: 19970101
  4. SEROQUEL [Concomitant]
     Dates: start: 19970101

REACTIONS (3)
  - BETA HAEMOLYTIC STREPTOCOCCAL INFECTION [None]
  - NECROTISING FASCIITIS [None]
  - SEPSIS [None]
